FAERS Safety Report 18111261 (Version 1)
Quarter: 2020Q3

REPORT INFORMATION
  Report Type: Spontaneous
  Country: US (occurrence: US)
  Receive Date: 20200804
  Receipt Date: 20200804
  Transmission Date: 20201103
  Serious: Yes (Death)
  Sender: FDA-Public Use
  Company Number: US-PURDUE-USA-2020-0159696

PATIENT
  Age: 64 Year
  Sex: Male

DRUGS (1)
  1. OXYCONTIN [Suspect]
     Active Substance: OXYCODONE HYDROCHLORIDE
     Indication: PRODUCT USED FOR UNKNOWN INDICATION
     Dosage: UNK
     Route: 048

REACTIONS (4)
  - Sepsis [Fatal]
  - Drug abuse [Fatal]
  - Acute kidney injury [Fatal]
  - Respiratory failure [Fatal]

NARRATIVE: CASE EVENT DATE: 20160524
